FAERS Safety Report 23648863 (Version 12)
Quarter: 2025Q2

REPORT INFORMATION
  Report Type: Report from Study
  Country: US (occurrence: US)
  Receive Date: 20240319
  Receipt Date: 20250410
  Transmission Date: 20250716
  Serious: Yes (Hospitalization, Other)
  Sender: TAKEDA
  Company Number: US-TAKEDA-2024TUS024407

PATIENT
  Age: 15 Year
  Sex: Female
  Weight: 66 kg

DRUGS (24)
  1. HUMAN IMMUNOGLOBULIN G\HYALURONIDASE RECOMBINANT HUMAN [Suspect]
     Active Substance: HUMAN IMMUNOGLOBULIN G\HYALURONIDASE (HUMAN RECOMBINANT)
     Indication: Myelin oligodendrocyte glycoprotein antibody-associated disease
     Dosage: 40 GRAM, Q2WEEKS
     Dates: start: 20240224
  2. HUMAN IMMUNOGLOBULIN G\HYALURONIDASE RECOMBINANT HUMAN [Suspect]
     Active Substance: HUMAN IMMUNOGLOBULIN G\HYALURONIDASE (HUMAN RECOMBINANT)
  3. HUMAN IMMUNOGLOBULIN G\HYALURONIDASE RECOMBINANT HUMAN [Suspect]
     Active Substance: HUMAN IMMUNOGLOBULIN G\HYALURONIDASE (HUMAN RECOMBINANT)
     Dosage: 30 GRAM, Q4WEEKS
  4. HUMAN IMMUNOGLOBULIN G [Suspect]
     Active Substance: HUMAN IMMUNOGLOBULIN G
     Indication: Product used for unknown indication
  5. SODIUM CHLORIDE [Concomitant]
     Active Substance: SODIUM CHLORIDE
  6. FAMOTIDINE [Concomitant]
     Active Substance: FAMOTIDINE
  7. ACETAMINOPHEN [Concomitant]
     Active Substance: ACETAMINOPHEN
  8. EPINEPHRINE [Concomitant]
     Active Substance: EPINEPHRINE
  9. PREDNISONE [Concomitant]
     Active Substance: PREDNISONE
  10. SODIUM CHLORIDE [Concomitant]
     Active Substance: SODIUM CHLORIDE
  11. PREDNISOLONE [Concomitant]
     Active Substance: PREDNISOLONE
  12. IBUPROFEN [Concomitant]
     Active Substance: IBUPROFEN
  13. ALLEGRA ALLERGY [Concomitant]
     Active Substance: FEXOFENADINE HYDROCHLORIDE
  14. LEVALBUTEROL HYDROCHLORIDE [Concomitant]
     Active Substance: LEVALBUTEROL HYDROCHLORIDE
  15. FLONASE ALLERGY RELIEF [Concomitant]
     Active Substance: FLUTICASONE PROPIONATE
  16. ALBUTEROL SULFATE [Concomitant]
     Active Substance: ALBUTEROL SULFATE
  17. FLUOCINOLONE ACETONIDE [Concomitant]
     Active Substance: FLUOCINOLONE ACETONIDE
  18. LIDOCAINE [Concomitant]
     Active Substance: LIDOCAINE
  19. MYFORTIC [Concomitant]
     Active Substance: MYCOPHENOLATE SODIUM
  20. DIPHENHYDRAMINE HYDROCHLORIDE [Concomitant]
     Active Substance: DIPHENHYDRAMINE HYDROCHLORIDE
  21. OMEPRAZOLE [Concomitant]
     Active Substance: OMEPRAZOLE
  22. VITAMIN D3 [Concomitant]
     Active Substance: CHOLECALCIFEROL
  23. OLOPATADINE HYDROCHLORIDE [Concomitant]
     Active Substance: OLOPATADINE HYDROCHLORIDE
  24. SYMBICORT [Concomitant]
     Active Substance: BUDESONIDE\FORMOTEROL FUMARATE DIHYDRATE

REACTIONS (12)
  - Pneumonia [Unknown]
  - Ovarian cyst ruptured [Unknown]
  - Meningitis aseptic [Unknown]
  - Device use issue [Unknown]
  - Product use in unapproved indication [Unknown]
  - Sinusitis [Unknown]
  - Bronchitis [Unknown]
  - Bronchitis chronic [Unknown]
  - Injection site swelling [Unknown]
  - Swelling [Unknown]
  - Abdominal distension [Unknown]
  - Headache [Recovered/Resolved]

NARRATIVE: CASE EVENT DATE: 20240224
